FAERS Safety Report 9634137 (Version 5)
Quarter: 2014Q1

REPORT INFORMATION
  Report Type: Report from Study
  Country: IE (occurrence: IE)
  Receive Date: 20131021
  Receipt Date: 20140205
  Transmission Date: 20141002
  Serious: Yes (Other)
  Sender: FDA-Public Use
  Company Number: IE-ABBVIE-13P-229-1142582-00

PATIENT
  Age: 35 Year
  Sex: Female

DRUGS (11)
  1. HUMIRA [Suspect]
     Indication: CROHN^S DISEASE
     Route: 058
     Dates: start: 20130201
  2. HUMIRA [Suspect]
     Route: 058
  3. HUMIRA [Suspect]
     Route: 058
  4. PONSTAN FORTE [Concomitant]
     Indication: PRODUCT USED FOR UNKNOWN INDICATION
     Dosage: ONCE TO BE TAKEN THREE TIMES DAILY
     Dates: start: 20131023
  5. MICROLITE [Concomitant]
     Indication: PRODUCT USED FOR UNKNOWN INDICATION
     Dosage: 3*21
     Dates: start: 20131023
  6. DUAC [Concomitant]
     Indication: PRODUCT USED FOR UNKNOWN INDICATION
     Dosage: APPLY ONCE DAILY
     Dates: start: 20130822
  7. PARACETAMOL [Concomitant]
     Dosage: TWO TO BE TAKEN FOUR TIMES DAILY
     Dates: start: 20130822
  8. PARACETAMOL [Concomitant]
     Dosage: 1-2 TABS PO Q 8 HOURLY AS NEEDED
     Route: 048
     Dates: start: 20130320
  9. NEXAZOLE [Concomitant]
     Indication: GASTRITIS
     Route: 048
     Dates: start: 20130822
  10. IXPRIM [Concomitant]
     Indication: PRODUCT USED FOR UNKNOWN INDICATION
     Dosage: 37.5 MG / 325 MG
     Dates: start: 20130221
  11. SERC [Concomitant]
     Indication: PRODUCT USED FOR UNKNOWN INDICATION
     Dosage: 1 TAB TDS AS NEEDED
     Dates: start: 20121116

REACTIONS (6)
  - Urinary tract infection [Recovered/Resolved]
  - Abdominal pain [Recovered/Resolved]
  - Pelvic pain [Recovered/Resolved]
  - Back pain [Recovered/Resolved]
  - Candida infection [Recovered/Resolved]
  - Back pain [Not Recovered/Not Resolved]
